FAERS Safety Report 16199390 (Version 3)
Quarter: 2019Q2

REPORT INFORMATION
  Report Type: Report from Study
  Country: TW (occurrence: TW)
  Receive Date: 20190415
  Receipt Date: 20190423
  Transmission Date: 20190711
  Serious: Yes (Hospitalization)
  Sender: FDA-Public Use
  Company Number: TW-BAYER-2019-073839

PATIENT
  Age: 48 Year
  Sex: Female

DRUGS (9)
  1. VENTAVIS [Suspect]
     Active Substance: ILOPROST
     Indication: PULMONARY ARTERIAL HYPERTENSION
     Dosage: 4AMP / DAY
     Route: 055
     Dates: start: 20130308
  2. TAGAMET [Concomitant]
     Active Substance: CIMETIDINE
     Dosage: TID
     Route: 048
  3. LASIX [Concomitant]
     Active Substance: FUROSEMIDE
     Dosage: 40 MG, QD
     Route: 048
  4. COMBIVENT [Concomitant]
     Active Substance: ALBUTEROL SULFATE\IPRATROPIUM BROMIDE
     Dosage: 2 ML, TID
     Route: 055
  5. MEPTIN [Concomitant]
     Active Substance: PROCATEROL HYDROCHLORIDE
     Dosage: 25 U 1# BID
     Route: 048
  6. THROUGH [Concomitant]
     Dosage: 2 #/ HS
     Route: 048
  7. ADEMPAS [Suspect]
     Active Substance: RIOCIGUAT
     Indication: PULMONARY ARTERIAL HYPERTENSION
     Dosage: 2MG / G8H
     Route: 048
     Dates: start: 20180830
  8. BIOTASE [BIODIASTASE 1000;LIPASE;NEWLASE] [Concomitant]
     Dosage: 1# TID
     Route: 048
  9. DIGOXIN. [Concomitant]
     Active Substance: DIGOXIN
     Dosage: 0.25 MG 0.5 #/QD
     Route: 048

REACTIONS (5)
  - Gastroenteritis [Recovered/Resolved]
  - White blood cell count increased [Recovered/Resolved]
  - Abdominal discomfort [Recovered/Resolved]
  - Sepsis [Recovered/Resolved]
  - Abdominal distension [Recovered/Resolved]

NARRATIVE: CASE EVENT DATE: 20190410
